FAERS Safety Report 22155538 (Version 1)
Quarter: 2023Q1

REPORT INFORMATION
  Report Type: Spontaneous
  Country: DE (occurrence: DE)
  Receive Date: 20230330
  Receipt Date: 20230330
  Transmission Date: 20230418
  Serious: Yes (Other)
  Sender: FDA-Public Use
  Company Number: DE-drreddys-LIT/GER/23/0163091

PATIENT
  Sex: Male

DRUGS (10)
  1. AZATHIOPRINE [Suspect]
     Active Substance: AZATHIOPRINE
     Indication: Langerhans^ cell histiocytosis
  2. CAPECITABINE [Suspect]
     Active Substance: CAPECITABINE
     Indication: Langerhans^ cell histiocytosis
  3. ETORICOXIB [Suspect]
     Active Substance: ETORICOXIB
     Indication: Langerhans^ cell histiocytosis
     Route: 048
  4. ETORICOXIB [Suspect]
     Active Substance: ETORICOXIB
     Indication: Disease recurrence
  5. PREDNISONE [Suspect]
     Active Substance: PREDNISONE
     Indication: Langerhans^ cell histiocytosis
  6. VINBLASTINE [Suspect]
     Active Substance: VINBLASTINE
     Indication: Langerhans^ cell histiocytosis
  7. PIOGLITAZONE [Suspect]
     Active Substance: PIOGLITAZONE
     Indication: Langerhans^ cell histiocytosis
     Route: 048
  8. PIOGLITAZONE [Suspect]
     Active Substance: PIOGLITAZONE
     Indication: Disease recurrence
  9. TROFOSFAMIDE [Suspect]
     Active Substance: TROFOSFAMIDE
     Indication: Langerhans^ cell histiocytosis
     Route: 048
  10. TROFOSFAMIDE [Suspect]
     Active Substance: TROFOSFAMIDE
     Indication: Disease recurrence

REACTIONS (4)
  - Langerhans^ cell histiocytosis [Recovering/Resolving]
  - Disease recurrence [Recovering/Resolving]
  - Haematoma [Recovered/Resolved]
  - Product use in unapproved indication [Unknown]
